FAERS Safety Report 4383260-5 (Version None)
Quarter: 2004Q2

REPORT INFORMATION
  Report Type: 
  Country: None (occurrence: None)
  Receive Date: 20040618
  Receipt Date: 20040604
  Transmission Date: 20050107
  Serious: Yes (Hospitalization)
  Sender: FDA-Public Use
  Company Number: 2004-0007134

PATIENT
  Age: 48 Year
  Sex: Male

DRUGS (4)
  1. VIREAD [Suspect]
     Indication: HIV INFECTION
     Dosage: ORAL
     Route: 048
     Dates: start: 20020221, end: 20030721
  2. VIDEX [Concomitant]
  3. EPIIR (LAMIVUDINE) [Concomitant]
  4. SUSTIVA (EFAVORENZ) [Concomitant]

REACTIONS (5)
  - CAMPYLOBACTER INFECTION [None]
  - GASTROINTESTINAL CANDIDIASIS [None]
  - HYPOKALAEMIA [None]
  - HYPOPHOSPHATAEMIA [None]
  - WEIGHT DECREASED [None]
